FAERS Safety Report 9503084 (Version 2)
Quarter: 2013Q4

REPORT INFORMATION
  Report Type: Spontaneous
  Country: IT (occurrence: IT)
  Receive Date: 20130906
  Receipt Date: 20131024
  Transmission Date: 20140711
  Serious: Yes (Hospitalization)
  Sender: FDA-Public Use
  Company Number: IT-PFIZER INC-2013255509

PATIENT
  Age: 71 Year
  Sex: Female

DRUGS (11)
  1. LYRICA [Suspect]
     Dosage: UNK
     Dates: start: 20130101, end: 20130629
  2. RISPERDAL [Suspect]
     Dosage: UNK
     Dates: start: 20130101, end: 20130629
  3. TARGIN [Suspect]
     Dosage: UNK
     Dates: start: 20130101, end: 20130629
  4. DEPAKIN CHRONO [Suspect]
     Dosage: UNK
     Dates: start: 20130101, end: 20130629
  5. EN [Suspect]
     Dosage: UNK
     Dates: start: 20130101, end: 20130629
  6. CALCIUM CARBONATE [Concomitant]
  7. HYDROCHLOROTHIAZIDE [Concomitant]
  8. CARDIOASPIRIN [Concomitant]
  9. EUTIROX [Concomitant]
  10. DIBASE [Concomitant]
  11. ACTONEL [Concomitant]

REACTIONS (2)
  - Psychomotor skills impaired [Recovering/Resolving]
  - Disorientation [Recovering/Resolving]
